APPROVED DRUG PRODUCT: PEMOLINE
Active Ingredient: PEMOLINE
Strength: 37.5MG
Dosage Form/Route: TABLET;ORAL
Application: A075286 | Product #002
Applicant: FOSUN PHARMA USA INC
Approved: Jun 30, 1999 | RLD: No | RS: No | Type: DISCN